FAERS Safety Report 11716718 (Version 2)
Quarter: 2016Q1

REPORT INFORMATION
  Report Type: Report from Study
  Country: SK (occurrence: SK)
  Receive Date: 20151109
  Receipt Date: 20160216
  Transmission Date: 20160525
  Serious: Yes (Hospitalization)
  Sender: FDA-Public Use
  Company Number: SK-JNJFOC-20151104307

PATIENT
  Age: 56 Year
  Sex: Male
  Weight: 98 kg

DRUGS (1)
  1. USTEKINUMAB [Suspect]
     Active Substance: USTEKINUMAB
     Indication: PSORIASIS
     Route: 058
     Dates: start: 201208

REACTIONS (1)
  - Bladder transitional cell carcinoma [Recovered/Resolved]

NARRATIVE: CASE EVENT DATE: 201502
